FAERS Safety Report 12637781 (Version 1)
Quarter: 2016Q3

REPORT INFORMATION
  Report Type: Spontaneous
  Country: US (occurrence: US)
  Receive Date: 20160809
  Receipt Date: 20160809
  Transmission Date: 20161109
  Serious: Yes (Other)
  Sender: FDA-Public Use
  Company Number: US-ABBVIE-15P-163-1490399-00

PATIENT
  Age: 19 Year
  Sex: Male

DRUGS (1)
  1. DEPAKOTE [Suspect]
     Active Substance: DIVALPROEX SODIUM
     Indication: COMPLEX PARTIAL SEIZURES
     Route: 065

REACTIONS (4)
  - Seizure [Unknown]
  - Hypersomnia [Unknown]
  - Altered state of consciousness [Unknown]
  - Weight increased [Unknown]
